FAERS Safety Report 14469696 (Version 2)
Quarter: 2018Q1

REPORT INFORMATION
  Report Type: Spontaneous
  Country: DE (occurrence: DE)
  Receive Date: 20180131
  Receipt Date: 20180320
  Transmission Date: 20180509
  Serious: Yes (Other)
  Sender: FDA-Public Use
  Company Number: DE-ELI_LILLY_AND_COMPANY-DE201801009071

PATIENT
  Sex: Male

DRUGS (5)
  1. TIAPRID [Suspect]
     Active Substance: TIAPRIDE HYDROCHLORIDE
     Indication: HYPERKINESIA
     Dosage: 300 MG, DAILY
     Route: 065
     Dates: start: 201512, end: 20171122
  2. OLANZAPINE. [Suspect]
     Active Substance: OLANZAPINE
     Dosage: UNK UNK, UNKNOWN
     Route: 065
  3. OLANZAPINE. [Suspect]
     Active Substance: OLANZAPINE
     Indication: PSYCHOTIC DISORDER
     Dosage: 10 MG, DAILY
     Route: 065
     Dates: start: 201512
  4. XEPLION [Suspect]
     Active Substance: PALIPERIDONE PALMITATE
     Indication: PSYCHOTIC DISORDER
     Dosage: 150 MG, MONTHLY (1/M)
     Route: 030
     Dates: start: 201512, end: 20171116
  5. OLANZAPINE. [Suspect]
     Active Substance: OLANZAPINE
     Dosage: 5 MG, DAILY
     Route: 065

REACTIONS (2)
  - Thrombocytopenia [Unknown]
  - Basophil count decreased [Unknown]
